FAERS Safety Report 14480399 (Version 1)
Quarter: 2018Q1

REPORT INFORMATION
  Report Type: Spontaneous
  Country: CN (occurrence: CN)
  Receive Date: 20180202
  Receipt Date: 20180202
  Transmission Date: 20180509
  Serious: Yes (Other)
  Sender: FDA-Public Use
  Company Number: CN-PFIZER INC-2018045980

PATIENT
  Age: 92 Year
  Sex: Male
  Weight: 50 kg

DRUGS (3)
  1. TIAN JIE [Concomitant]
     Indication: THERAPEUTIC PROCEDURE
     Dosage: 50 MG, 2X/DAY
     Route: 041
     Dates: start: 20171030, end: 20171108
  2. TIENAM [Concomitant]
     Active Substance: CILASTATIN SODIUM\IMIPENEM
     Indication: THERAPEUTIC PROCEDURE
     Dosage: 1000 MG, 3X/DAY
     Route: 041
     Dates: start: 20171030, end: 20171108
  3. ZYVOX [Suspect]
     Active Substance: LINEZOLID
     Indication: THERAPEUTIC PROCEDURE
     Dosage: 0.6 G, 2X/DAY
     Route: 041
     Dates: start: 20171025, end: 20171106

REACTIONS (2)
  - Platelet count decreased [Recovering/Resolving]
  - Thrombotic thrombocytopenic purpura [Recovering/Resolving]

NARRATIVE: CASE EVENT DATE: 20171106
